FAERS Safety Report 25953581 (Version 1)
Quarter: 2025Q4

REPORT INFORMATION
  Report Type: Spontaneous
  Country: EU (occurrence: EU)
  Receive Date: 20251023
  Receipt Date: 20251023
  Transmission Date: 20260118
  Serious: Yes (Other)
  Sender: BridgeBio Pharma
  Company Number: EU-BAYER-2025A136587

PATIENT

DRUGS (1)
  1. ACORAMIDIS [Suspect]
     Active Substance: ACORAMIDIS
     Indication: Amyloidosis

REACTIONS (2)
  - Age-related macular degeneration [Unknown]
  - Visual impairment [Not Recovered/Not Resolved]

NARRATIVE: CASE EVENT DATE: 20251014
